FAERS Safety Report 7739510-8 (Version None)
Quarter: 2011Q3

REPORT INFORMATION
  Report Type: 
  Country: None (occurrence: None)
  Receive Date: 20110909
  Receipt Date: 20110906
  Transmission Date: 20111222
  Serious: Yes (Hospitalization, Other)
  Sender: FDA-Public Use
  Company Number: US-BRISTOL-MYERS SQUIBB COMPANY-15193501

PATIENT
  Age: 65 Year
  Sex: Male
  Weight: 77 kg

DRUGS (8)
  1. ALIMTA [Suspect]
     Indication: NON-SMALL CELL LUNG CANCER
     Dosage: INTER ON: 01JUN2010.44D; RESTARTED ON 06JUL2010 (250MG/M2)
     Route: 042
     Dates: start: 20100419
  2. ONDANSETRON HCL [Concomitant]
     Dates: start: 20100607
  3. CIPROFLOXACIN [Concomitant]
     Dates: start: 20100607
  4. VITAMIN B-12 [Concomitant]
     Dates: start: 20100405
  5. CARBOPLATIN [Suspect]
     Indication: NON-SMALL CELL LUNG CANCER
     Dosage: 1DF=6AUC INTER ON: 01JUN2010.44D; RESTARTED ON 06JUL2010 (3AUC)
     Route: 042
     Dates: start: 20100419
  6. EMEND [Concomitant]
     Dates: start: 20100607
  7. XANAX [Concomitant]
  8. FOLIC ACID [Concomitant]
     Dates: start: 20100405

REACTIONS (9)
  - MUCOSAL INFLAMMATION [None]
  - HYPOKALAEMIA [None]
  - HYPOCALCAEMIA [None]
  - HAEMORRHAGE [None]
  - PLATELET COUNT DECREASED [None]
  - HYPERBILIRUBINAEMIA [None]
  - DEHYDRATION [None]
  - ANAEMIA [None]
  - HYPOTENSION [None]
